FAERS Safety Report 17295757 (Version 12)
Quarter: 2020Q4

REPORT INFORMATION
  Report Type: Report from Study
  Country: US (occurrence: US)
  Receive Date: 20200121
  Receipt Date: 20201216
  Transmission Date: 20210113
  Serious: No
  Sender: FDA-Public Use
  Company Number: NVSC2020US012975

PATIENT
  Age: 55 Year
  Sex: Female

DRUGS (4)
  1. COSENTYX [Suspect]
     Active Substance: SECUKINUMAB
     Indication: PSORIATIC ARTHROPATHY
     Dosage: UNK, UNKNOWN
     Route: 058
     Dates: start: 201910
  2. COSENTYX [Suspect]
     Active Substance: SECUKINUMAB
     Dosage: 300 MG, QMO
     Route: 058
     Dates: start: 202001
  3. COSENTYX [Suspect]
     Active Substance: SECUKINUMAB
     Dosage: UNK, UNKNOWN
     Route: 058
  4. COSENTYX [Suspect]
     Active Substance: SECUKINUMAB
     Dosage: 150 MG, QW
     Route: 058
     Dates: start: 20191231

REACTIONS (11)
  - Injection site erythema [Not Recovered/Not Resolved]
  - Sinusitis [Unknown]
  - Joint stiffness [Not Recovered/Not Resolved]
  - Arthralgia [Not Recovered/Not Resolved]
  - Psoriasis [Not Recovered/Not Resolved]
  - Depression [Not Recovered/Not Resolved]
  - Nail bed disorder [Not Recovered/Not Resolved]
  - Bacterial infection [Unknown]
  - Bacterial vaginosis [Unknown]
  - Contusion [Unknown]
  - Enterobiasis [Unknown]

NARRATIVE: CASE EVENT DATE: 20200107
